FAERS Safety Report 13134916 (Version 2)
Quarter: 2017Q1

REPORT INFORMATION
  Report Type: Spontaneous
  Country: US (occurrence: US)
  Receive Date: 20170120
  Receipt Date: 20170313
  Transmission Date: 20170428
  Serious: Yes (Other)
  Sender: FDA-Public Use
  Company Number: US-BAYER-2017-011752

PATIENT
  Age: 8 Year
  Weight: 59.37 kg

DRUGS (1)
  1. GADAVIST [Suspect]
     Active Substance: GADOBUTROL
     Dosage: 6 ML, ONCE
     Dates: start: 20161231, end: 20161231

REACTIONS (10)
  - Swollen tongue [None]
  - Pruritus [None]
  - Respiratory distress [None]
  - Rash [None]
  - Swelling face [None]
  - Anxiety [None]
  - Nausea [None]
  - Vomiting [None]
  - Cough [None]
  - Dysarthria [None]

NARRATIVE: CASE EVENT DATE: 20161231
